FAERS Safety Report 9276337 (Version 2)
Quarter: 2013Q3

REPORT INFORMATION
  Report Type: Spontaneous
  Country: US (occurrence: US)
  Receive Date: 20130507
  Receipt Date: 20130710
  Transmission Date: 20140515
  Serious: No
  Sender: FDA-Public Use
  Company Number: US-PFIZER INC-2013141838

PATIENT
  Age: 56 Year
  Sex: Female
  Weight: 77.1 kg

DRUGS (4)
  1. LYRICA [Suspect]
     Indication: NEUROPATHY PERIPHERAL
     Dosage: 50 MG, 2X/DAY
     Route: 048
     Dates: start: 201301, end: 201305
  2. MOBIC [Concomitant]
     Indication: ARTHRITIS
     Dosage: 15 MG, UNK
  3. PAXIL [Concomitant]
     Dosage: 30 MG, UNK
  4. CELEBREX [Concomitant]
     Dosage: UNK, 1X/DAY

REACTIONS (2)
  - Depression [Recovered/Resolved]
  - Mood altered [Unknown]
